FAERS Safety Report 8942024 (Version 1)
Quarter: 2012Q4

REPORT INFORMATION
  Report Type: 
  Country: GB (occurrence: GB)
  Receive Date: 20121130
  Receipt Date: 20121130
  Transmission Date: 20130627
  Serious: Yes (Other)
  Sender: FDA-Public Use
  Company Number: GB-PFIZER INC-2012295856

PATIENT
  Age: 49 Year
  Sex: Female
  Weight: 65.77 kg

DRUGS (2)
  1. LYRICA [Suspect]
     Indication: FIBROMYALGIA
     Dosage: 200mg, unk
     Route: 048
     Dates: start: 20120521
  2. LYRICA [Suspect]
     Dosage: increased to 600mg, UNK
     Route: 048
     Dates: end: 20120714

REACTIONS (4)
  - Pain in extremity [Not Recovered/Not Resolved]
  - Arthralgia [Recovered/Resolved with Sequelae]
  - Dyspepsia [Recovered/Resolved]
  - Drug ineffective [Unknown]
